FAERS Safety Report 14052535 (Version 1)
Quarter: 2017Q4

REPORT INFORMATION
  Report Type: Spontaneous
  Country: DK (occurrence: DK)
  Receive Date: 20171006
  Receipt Date: 20171006
  Transmission Date: 20180321
  Serious: Yes (Other)
  Sender: FDA-Public Use
  Company Number: PHHY2017DK143506

PATIENT
  Sex: Male
  Weight: 87 kg

DRUGS (1)
  1. TRAMADOL RETARD HEXAL [Suspect]
     Active Substance: TRAMADOL HYDROCHLORIDE
     Indication: PAIN
     Dosage: 200 MG, BID
     Route: 048
     Dates: start: 20151203, end: 20170901

REACTIONS (3)
  - Dependence [Recovering/Resolving]
  - Drug intolerance [Recovering/Resolving]
  - Withdrawal syndrome [Recovering/Resolving]
